FAERS Safety Report 6288124-8 (Version None)
Quarter: 2009Q3

REPORT INFORMATION
  Report Type: 
  Country: None (occurrence: None)
  Receive Date: 20090729
  Receipt Date: 20090310
  Transmission Date: 20100115
  Serious: No
  Sender: FDA-Public Use
  Company Number: A0773327A

PATIENT
  Age: 71 Year
  Sex: Male

DRUGS (1)
  1. ZANTAC [Suspect]

REACTIONS (1)
  - DRUG INEFFECTIVE [None]
